FAERS Safety Report 13251766 (Version 1)
Quarter: 2017Q1

REPORT INFORMATION
  Report Type: Spontaneous
  Country: US (occurrence: US)
  Receive Date: 20170220
  Receipt Date: 20170220
  Transmission Date: 20170428
  Serious: No
  Sender: FDA-Public Use
  Company Number: US-PFIZER INC-2017067834

PATIENT
  Sex: Female

DRUGS (4)
  1. NEURONTIN [Suspect]
     Active Substance: GABAPENTIN
     Indication: SPINAL COLUMN STENOSIS
     Dosage: 300 MG, UNK
  2. NEURONTIN [Suspect]
     Active Substance: GABAPENTIN
     Indication: FIBROMYALGIA
     Dosage: 100 MG, UNK
  3. NEURONTIN [Suspect]
     Active Substance: GABAPENTIN
     Indication: NERVE COMPRESSION
  4. NEURONTIN [Suspect]
     Active Substance: GABAPENTIN
     Indication: NEURALGIA
     Dosage: 200 MG, UNK

REACTIONS (3)
  - Headache [Unknown]
  - Product use issue [Unknown]
  - Blood pressure increased [Unknown]
